FAERS Safety Report 10201890 (Version 3)
Quarter: 2014Q2

REPORT INFORMATION
  Report Type: Spontaneous
  Country: DE (occurrence: DE)
  Receive Date: 20140528
  Receipt Date: 20140620
  Transmission Date: 20141212
  Serious: Yes (Other)
  Sender: FDA-Public Use
  Company Number: PHHY2014DE060779

PATIENT
  Sex: Female

DRUGS (3)
  1. ULTIBRO BREEZHALER [Suspect]
     Indication: CHRONIC OBSTRUCTIVE PULMONARY DISEASE
     Dosage: 1 DF, QD
     Dates: start: 2013, end: 201405
  2. ULTIBRO BREEZHALER [Suspect]
     Dosage: 1 DF, QD
     Dates: start: 201405
  3. CYCLOCAPS [Concomitant]
     Indication: CHRONIC OBSTRUCTIVE PULMONARY DISEASE

REACTIONS (3)
  - Age-related macular degeneration [Unknown]
  - Eye haemorrhage [Unknown]
  - Cough [Not Recovered/Not Resolved]
